FAERS Safety Report 15048127 (Version 2)
Quarter: 2018Q4

REPORT INFORMATION
  Report Type: Report from Study
  Country: CL (occurrence: CL)
  Receive Date: 20180622
  Receipt Date: 20181128
  Transmission Date: 20190204
  Serious: Yes (Hospitalization, Other)
  Sender: FDA-Public Use
  Company Number: CL-BRISTOL-MYERS SQUIBB COMPANY-BMS-2018-054804

PATIENT
  Age: 61 Year
  Sex: Female

DRUGS (2)
  1. ISONIAZID. [Suspect]
     Active Substance: ISONIAZID
     Indication: LATENT TUBERCULOSIS
     Route: 065
  2. ABATACEPT [Suspect]
     Active Substance: ABATACEPT
     Indication: RHEUMATOID ARTHRITIS
     Dosage: 125 MG, QWK
     Route: 058
     Dates: start: 20180507

REACTIONS (6)
  - Hepatitis toxic [Recovering/Resolving]
  - Pallor [Unknown]
  - Discomfort [Unknown]
  - Pain [Recovering/Resolving]
  - Tuberculosis [Recovering/Resolving]
  - Immunosuppression [Recovering/Resolving]

NARRATIVE: CASE EVENT DATE: 2018
